FAERS Safety Report 8822116 (Version 5)
Quarter: 2013Q4

REPORT INFORMATION
  Report Type: Report from Study
  Country: RU (occurrence: RU)
  Receive Date: 20121003
  Receipt Date: 20131220
  Transmission Date: 20140711
  Serious: Yes (Other)
  Sender: FDA-Public Use
  Company Number: RU-MERCK-1209RUS011324

PATIENT
  Age: 31 Year
  Sex: Male
  Weight: 70 kg

DRUGS (4)
  1. BOCEPREVIR [Suspect]
     Indication: CHRONIC HEPATITIS C
     Dosage: 800 MG, TID
     Route: 048
     Dates: start: 20120403, end: 20120917
  2. PEG-INTRON [Suspect]
     Indication: CHRONIC HEPATITIS C
     Dosage: 120 MICROGRAM, 0.5 ML QW
     Route: 058
     Dates: start: 20120306, end: 20120730
  3. PEG-INTRON [Suspect]
     Dosage: 120 MICROGRAM, 0.3 ML QW
     Route: 058
     Dates: start: 20120731, end: 20120911
  4. RIBAVIRIN [Suspect]
     Indication: CHRONIC HEPATITIS C
     Dosage: 1000 MG, BID: 400 MG MORNING, 600 MG EVENING
     Route: 048
     Dates: start: 20120306, end: 20120917

REACTIONS (1)
  - Neutropenia [Recovered/Resolved]
